FAERS Safety Report 5742630-0 (Version None)
Quarter: 2008Q2

REPORT INFORMATION
  Report Type: 
  Country: None (occurrence: None)
  Receive Date: 20080519
  Receipt Date: 20080508
  Transmission Date: 20081010
  Serious: Yes (Death, Other)
  Sender: FDA-Public Use
  Company Number: US-ROCHE-563139

PATIENT
  Sex: Male
  Weight: 112.9 kg

DRUGS (13)
  1. VALGANCICLOVIR HCL [Suspect]
     Route: 065
     Dates: start: 20080301
  2. MYFORTIC [Concomitant]
  3. PROGRAF [Concomitant]
  4. ASPIRIN [Concomitant]
  5. SEPTRA [Concomitant]
  6. SEPTRA [Concomitant]
  7. FAMOTIDINE [Concomitant]
  8. AMLODIPINE [Concomitant]
  9. LABETALOL HCL [Concomitant]
  10. NOVOLOG [Concomitant]
     Dosage: DRUG REPORTED: NOVLOG INSULIN
  11. LANTUS [Concomitant]
     Dosage: DRUG REPORTED: LANTAS INSULIN
  12. LIPITOR [Concomitant]
  13. LISINOPRIL [Concomitant]

REACTIONS (11)
  - ABDOMINAL PAIN UPPER [None]
  - BLOOD GLUCOSE INCREASED [None]
  - CARDIAC ARREST [None]
  - DIZZINESS [None]
  - DYSPNOEA [None]
  - ELECTROCARDIOGRAM CHANGE [None]
  - FALL [None]
  - HEAD INJURY [None]
  - HYPERHIDROSIS [None]
  - LOSS OF CONSCIOUSNESS [None]
  - SKIN LACERATION [None]
